FAERS Safety Report 4817253-8 (Version None)
Quarter: 2005Q4

REPORT INFORMATION
  Report Type: 
  Country: None (occurrence: None)
  Receive Date: 20051101
  Receipt Date: 20051018
  Transmission Date: 20060501
  Serious: Yes (Death)
  Sender: FDA-Public Use
  Company Number: DE-JNJFOC-20051004406

PATIENT
  Age: 5 Year
  Sex: Female
  Weight: 19 kg

DRUGS (4)
  1. ACETAMINOPHEN [Suspect]
     Route: 054
  2. ACETAMINOPHEN [Suspect]
     Indication: POSTOPERATIVE ANALGESIA
     Route: 054
  3. AMPICILLIN [Concomitant]
  4. ACETYLCYSTEINE [Concomitant]

REACTIONS (16)
  - ABDOMINAL PAIN UPPER [None]
  - ANAEMIA [None]
  - BRONCHITIS [None]
  - CARDIAC ARREST [None]
  - CONSTIPATION [None]
  - ECCHYMOSIS [None]
  - HEPATIC FAILURE [None]
  - HEPATIC NECROSIS [None]
  - HEPATOMEGALY [None]
  - INFLAMMATION [None]
  - MUSCLE HAEMORRHAGE [None]
  - PETECHIAE [None]
  - RENAL TUBULAR NECROSIS [None]
  - SKIN HAEMORRHAGE [None]
  - TRACHEAL DISORDER [None]
  - WHITE BLOOD CELL COUNT INCREASED [None]
